FAERS Safety Report 16110622 (Version 2)
Quarter: 2019Q2

REPORT INFORMATION
  Report Type: Spontaneous
  Country: JP (occurrence: JP)
  Receive Date: 20190325
  Receipt Date: 20190606
  Transmission Date: 20190711
  Serious: Yes (Hospitalization, Disabling, Other)
  Sender: FDA-Public Use
  Company Number: JP-009507513-1903JPN001791J

PATIENT
  Age: 74 Year
  Sex: Male
  Weight: 170 kg

DRUGS (15)
  1. KEYTRUDA [Suspect]
     Active Substance: PEMBROLIZUMAB
     Indication: TRANSITIONAL CELL CARCINOMA
     Dosage: 200 MILLIGRAM, Q3W
     Route: 041
     Dates: start: 20180613, end: 20181206
  2. SHAKUYAKUKANZOTO [Concomitant]
     Active Substance: HERBALS
     Dosage: UNK
     Route: 065
  3. OLOPATADINE HYDROCHLORIDE. [Concomitant]
     Active Substance: OLOPATADINE HYDROCHLORIDE
     Indication: PRURITUS
     Dosage: UNK
     Route: 048
     Dates: start: 20181025
  4. ZOLPIDEM TARTRATE. [Concomitant]
     Active Substance: ZOLPIDEM TARTRATE
     Dosage: UNK
     Route: 065
  5. HUMALOG [Concomitant]
     Active Substance: INSULIN LISPRO
     Dosage: UNK
     Route: 065
  6. ATORVASTATIN [Concomitant]
     Active Substance: ATORVASTATIN
     Dosage: UNK
     Route: 065
  7. TAMSULOSIN HYDROCHLORIDE. [Concomitant]
     Active Substance: TAMSULOSIN HYDROCHLORIDE
     Indication: BENIGN PROSTATIC HYPERPLASIA
     Dosage: UNK
     Route: 048
     Dates: start: 201604
  8. LYRICA [Concomitant]
     Active Substance: PREGABALIN
     Dosage: UNK
     Route: 065
  9. PHENOBAL [Concomitant]
     Active Substance: PHENOBARBITAL
     Indication: EPILEPSY
     Dosage: UNK
     Route: 065
     Dates: start: 2006
  10. LIOVEL [Concomitant]
     Active Substance: ALOGLIPTIN BENZOATE\PIOGLITAZONE HYDROCHLORIDE
     Dosage: UNK
     Route: 065
  11. CELECOX [Concomitant]
     Active Substance: CELECOXIB
     Dosage: UNK
     Route: 065
  12. LANSOPRAZOLE. [Concomitant]
     Active Substance: LANSOPRAZOLE
     Dosage: UNK
     Route: 065
  13. TRAZENTA [Concomitant]
     Active Substance: LINAGLIPTIN
     Indication: DIABETES MELLITUS
     Dosage: UNK
     Route: 048
     Dates: start: 2006
  14. AVOLVE [Concomitant]
     Active Substance: DUTASTERIDE
     Indication: BENIGN PROSTATIC HYPERPLASIA
     Dosage: UNK
     Route: 048
     Dates: start: 201611
  15. TRESIBA [Concomitant]
     Active Substance: INSULIN DEGLUDEC
     Dosage: UNK
     Route: 065

REACTIONS (8)
  - Gait disturbance [Recovering/Resolving]
  - Urinary tract infection [Unknown]
  - Disuse syndrome [Unknown]
  - Hiccups [Unknown]
  - Toxic skin eruption [Recovering/Resolving]
  - Adrenal insufficiency [Recovering/Resolving]
  - Hyponatraemia [Recovering/Resolving]
  - Schizophrenia [Recovering/Resolving]

NARRATIVE: CASE EVENT DATE: 20181129
